FAERS Safety Report 16472945 (Version 6)
Quarter: 2019Q4

REPORT INFORMATION
  Report Type: Spontaneous
  Country: JP (occurrence: JP)
  Receive Date: 20190625
  Receipt Date: 20191223
  Transmission Date: 20200122
  Serious: Yes (Hospitalization, Other)
  Sender: FDA-Public Use
  Company Number: JP-AMGEN-JPNSP2019100179

PATIENT
  Age: 71 Year
  Sex: Male

DRUGS (13)
  1. CISPLATIN. [Concomitant]
     Active Substance: CISPLATIN
     Dosage: 64 MILLIGRAM/SQ. METER
     Route: 041
     Dates: start: 20190111, end: 20190111
  2. G-LASTA [Suspect]
     Active Substance: PEGFILGRASTIM
     Indication: COLONY STIMULATING FACTOR THERAPY
     Dosage: UNK
     Route: 058
     Dates: start: 20181118, end: 20181118
  3. ETOPOSIDE. [Concomitant]
     Active Substance: ETOPOSIDE
     Dosage: 80 MILLIGRAM/SQ. METER
     Route: 041
     Dates: start: 20181115, end: 20181115
  4. ETOPOSIDE. [Concomitant]
     Active Substance: ETOPOSIDE
     Dosage: 80 MILLIGRAM/SQ. METER
     Route: 041
     Dates: start: 20181211, end: 20181211
  5. ETOPOSIDE. [Concomitant]
     Active Substance: ETOPOSIDE
     Indication: LARGE CELL LUNG CANCER STAGE I
     Dosage: 100 MILLIGRAM/SQ. METER
     Route: 041
     Dates: start: 20180905, end: 20180905
  6. CISPLATIN. [Concomitant]
     Active Substance: CISPLATIN
     Dosage: 64 MILLIGRAM/SQ. METER
     Route: 041
     Dates: start: 20181215, end: 20181215
  7. PREDNISOLONE. [Concomitant]
     Active Substance: PREDNISOLONE
     Indication: RHEUMATOID ARTHRITIS
     Dosage: 40 MILLIGRAM
     Route: 048
  8. PREDNISOLONE. [Concomitant]
     Active Substance: PREDNISOLONE
     Dosage: 40 MILLIGRAM
     Route: 048
     Dates: start: 20181130, end: 20181130
  9. PREDNISOLONE. [Concomitant]
     Active Substance: PREDNISOLONE
     Dosage: 20 MILLIGRAM
     Route: 048
     Dates: start: 20181206, end: 20181206
  10. CISPLATIN. [Concomitant]
     Active Substance: CISPLATIN
     Indication: LARGE CELL LUNG CANCER STAGE I
     Dosage: 80 MILLIGRAM/SQ. METER
     Route: 041
     Dates: start: 20180905, end: 20180905
  11. CISPLATIN. [Concomitant]
     Active Substance: CISPLATIN
     Dosage: 64 MILLIGRAM/SQ. METER
     Route: 041
     Dates: start: 20181115, end: 20181115
  12. ETOPOSIDE. [Concomitant]
     Active Substance: ETOPOSIDE
     Dosage: 80 MILLIGRAM/SQ. METER
     Route: 041
     Dates: start: 20190111, end: 20190111
  13. PREDNISOLONE. [Concomitant]
     Active Substance: PREDNISOLONE
     Dosage: 30 MILLIGRAM
     Route: 048
     Dates: start: 20181204, end: 20181204

REACTIONS (1)
  - Aortitis [Recovered/Resolved]

NARRATIVE: CASE EVENT DATE: 20181124
